FAERS Safety Report 7470112-7 (Version None)
Quarter: 2011Q2

REPORT INFORMATION
  Report Type: 
  Country: None (occurrence: None)
  Receive Date: 20110510
  Receipt Date: 20110504
  Transmission Date: 20111010
  Serious: Yes (Hospitalization)
  Sender: FDA-Public Use
  Company Number: A0890543A

PATIENT
  Age: 74 Year
  Sex: Female

DRUGS (13)
  1. PLAVIX [Concomitant]
  2. GLYBURIDE [Concomitant]
  3. COREG [Concomitant]
  4. SPIRIVA [Concomitant]
  5. PREDNISONE [Concomitant]
  6. ADVAIR DISKUS 100/50 [Suspect]
     Indication: ASTHMA
     Dosage: 1PUFF PER DAY
     Route: 055
     Dates: start: 20080101
  7. FISH OIL [Concomitant]
  8. VENTOLIN HFA [Concomitant]
  9. SYNTHROID [Concomitant]
  10. METFORMIN HCL [Concomitant]
  11. INSULIN NOVOLIN [Concomitant]
  12. DIOVAN [Concomitant]
  13. LASIX [Concomitant]

REACTIONS (5)
  - CEREBROVASCULAR ACCIDENT [None]
  - HEMIPARESIS [None]
  - BONE CYST [None]
  - NERVOUS SYSTEM DISORDER [None]
  - WALKING AID USER [None]
